FAERS Safety Report 20481154 (Version 1)
Quarter: 2022Q1

REPORT INFORMATION
  Report Type: Spontaneous
  Country: US (occurrence: None)
  Receive Date: 20220216
  Receipt Date: 20220216
  Transmission Date: 20220423
  Serious: No
  Sender: FDA-Public Use
  Company Number: None

PATIENT
  Age: 24 Year
  Sex: Male

DRUGS (1)
  1. STELARA [Suspect]
     Active Substance: USTEKINUMAB
     Indication: Crohn^s disease
     Dosage: 90MG EVERY 8 WEEKS SUBCUTANEOUS?
     Route: 058
     Dates: start: 20170815

REACTIONS (2)
  - Therapeutic product effect decreased [None]
  - Condition aggravated [None]

NARRATIVE: CASE EVENT DATE: 20211101
